FAERS Safety Report 16496088 (Version 1)
Quarter: 2019Q2

REPORT INFORMATION
  Report Type: Spontaneous
  Country: JP (occurrence: JP)
  Receive Date: 20190628
  Receipt Date: 20190628
  Transmission Date: 20190711
  Serious: Yes (Other)
  Sender: FDA-Public Use
  Company Number: JP-FRESENIUS KABI-FK201906990

PATIENT
  Age: 53 Year
  Sex: Female
  Weight: 54.4 kg

DRUGS (2)
  1. OCTREOTIDE. [Suspect]
     Active Substance: OCTREOTIDE
     Indication: ACROMEGALY
     Dosage: LONG-ACTING RELEASE
     Route: 045
  2. OCTREOTIDE INJECTION (MANUFACTURER UNKNOWN) [Suspect]
     Active Substance: OCTREOTIDE
     Indication: ACROMEGALY
     Dosage: 100 UG
     Route: 065

REACTIONS (3)
  - Hyperthyroidism [Unknown]
  - Pyrexia [Unknown]
  - Neck pain [Unknown]
